FAERS Safety Report 16675415 (Version 2)
Quarter: 2019Q3

REPORT INFORMATION
  Report Type: Spontaneous
  Country: AU (occurrence: AU)
  Receive Date: 20190806
  Receipt Date: 20190906
  Transmission Date: 20191004
  Serious: Yes (Other)
  Sender: FDA-Public Use
  Company Number: AU-ABBOTT MEDICAL OPTICS-2072817

PATIENT
  Sex: Female

DRUGS (1)
  1. BLINK TEARS [Suspect]
     Active Substance: POLYETHYLENE GLYCOL 400
     Indication: DRY EYE
     Route: 047

REACTIONS (1)
  - Ocular hyperaemia [Recovered/Resolved]
